FAERS Safety Report 7759820-8 (Version None)
Quarter: 2011Q3

REPORT INFORMATION
  Report Type: 
  Country: None (occurrence: None)
  Receive Date: 20110919
  Receipt Date: 20110910
  Transmission Date: 20111222
  Serious: Yes (Other)
  Sender: FDA-Public Use
  Company Number: EG-B.I. PHARMACEUTICALS,INC./RIDGEFIELD-2011-BP-22058YA

PATIENT
  Sex: Male
  Weight: 92 kg

DRUGS (3)
  1. PROSCAR [Concomitant]
     Indication: BENIGN PROSTATIC HYPERPLASIA
     Dosage: 5 MG
     Route: 048
     Dates: start: 20100801
  2. CENTRUM (VITAMINS NOS) [Concomitant]
     Indication: VITAMIN SUPPLEMENTATION
     Route: 048
  3. TAMSULOSIN HCL [Suspect]
     Indication: BENIGN PROSTATIC HYPERPLASIA
     Dosage: 0.4 MG
     Route: 048
     Dates: start: 20100801

REACTIONS (1)
  - MYASTHENIA GRAVIS [None]
